FAERS Safety Report 18428294 (Version 4)
Quarter: 2021Q4

REPORT INFORMATION
  Report Type: Spontaneous
  Country: CH (occurrence: CH)
  Receive Date: 20201026
  Receipt Date: 20211006
  Transmission Date: 20220303
  Serious: Yes (Other)
  Sender: FDA-Public Use
  Company Number: CH-002147023-NVSC2020CH282178

PATIENT

DRUGS (4)
  1. RUXOLITINIB [Suspect]
     Active Substance: RUXOLITINIB
     Indication: Graft versus host disease in skin
     Dosage: UNK
     Route: 065
     Dates: end: 20210728
  2. COSENTYX [Suspect]
     Active Substance: SECUKINUMAB
     Indication: Graft versus host disease in skin
     Dosage: UNK
     Route: 065
  3. ITRACONAZOLE [Concomitant]
     Active Substance: ITRACONAZOLE
     Indication: Product used for unknown indication
     Dosage: UNK
     Route: 065
  4. CORTISONE [Concomitant]
     Active Substance: CORTISONE
     Indication: Product used for unknown indication
     Dosage: UNK
     Route: 065

REACTIONS (2)
  - Drug ineffective for unapproved indication [Unknown]
  - Graft versus host disease in skin [Recovering/Resolving]

NARRATIVE: CASE EVENT DATE: 20200701
